FAERS Safety Report 6140559-X (Version None)
Quarter: 2009Q2

REPORT INFORMATION
  Report Type: 
  Country: None (occurrence: None)
  Receive Date: 20090402
  Receipt Date: 20090331
  Transmission Date: 20091009
  Serious: Yes (Other)
  Sender: FDA-Public Use
  Company Number: US-PFIZER INC-2006019501

PATIENT
  Sex: Female
  Weight: 88.435 kg

DRUGS (10)
  1. PROVERA [Suspect]
     Indication: HORMONE REPLACEMENT THERAPY
     Route: 048
  2. ESTROGENS CONJUGATED [Suspect]
     Indication: HORMONE REPLACEMENT THERAPY
     Dosage: UNK
     Dates: start: 19880101, end: 19890101
  3. ESTROGENS CONJUGATED [Suspect]
     Indication: MENOPAUSAL SYMPTOMS
  4. PROGESTERONE [Suspect]
     Indication: HORMONE REPLACEMENT THERAPY
     Dosage: UNK
     Dates: start: 19880101, end: 19890101
  5. PROGESTERONE [Suspect]
     Indication: MENOPAUSAL SYMPTOMS
  6. PREMPRO [Suspect]
     Indication: HORMONE REPLACEMENT THERAPY
     Dosage: UNK
     Dates: start: 19950101, end: 19990101
  7. PREMPRO [Suspect]
     Indication: MENOPAUSAL SYMPTOMS
  8. DILACOR XR [Concomitant]
     Indication: HYPERTENSION
     Dosage: 10 MG, 1X/DAY
     Dates: start: 19940101
  9. SYNTHROID [Concomitant]
     Indication: HYPOTHYROIDISM
     Dosage: 2 MG, UNK
     Dates: start: 19840101
  10. ALDACTONE [Concomitant]
     Indication: HIRSUTISM
     Dosage: 100 MG, 2X/DAY
     Dates: start: 19840101, end: 20020101

REACTIONS (1)
  - BREAST CANCER [None]
